FAERS Safety Report 16528914 (Version 1)
Quarter: 2019Q3

REPORT INFORMATION
  Report Type: Spontaneous
  Country: PL (occurrence: PL)
  Receive Date: 20190703
  Receipt Date: 20190703
  Transmission Date: 20191004
  Serious: Yes (Hospitalization)
  Sender: FDA-Public Use
  Company Number: PHHY2019PL151393

PATIENT
  Age: 33 Year
  Sex: Male
  Weight: 105 kg

DRUGS (1)
  1. OSPEN [Suspect]
     Active Substance: PENICILLIN V
     Indication: PHARYNGITIS
     Dosage: 1 DF, TID
     Route: 048
     Dates: start: 20190114, end: 20190115

REACTIONS (2)
  - Erythema [Recovering/Resolving]
  - Rash pustular [Recovering/Resolving]

NARRATIVE: CASE EVENT DATE: 20190115
